FAERS Safety Report 23274885 (Version 1)
Quarter: 2023Q4

REPORT INFORMATION
  Report Type: Spontaneous
  Country: US (occurrence: US)
  Receive Date: 20231208
  Receipt Date: 20231208
  Transmission Date: 20240110
  Serious: No
  Sender: FDA-Public Use
  Company Number: US-BRISTOL-MYERS SQUIBB COMPANY-2023-174977

PATIENT
  Age: 38 Year
  Sex: Male

DRUGS (1)
  1. SOTYKTU [Suspect]
     Active Substance: DEUCRAVACITINIB
     Indication: Rheumatoid arthritis
     Route: 048
     Dates: start: 202309

REACTIONS (2)
  - Skin papilloma [Unknown]
  - Off label use [Unknown]
